FAERS Safety Report 6906978-6 (Version None)
Quarter: 2010Q3

REPORT INFORMATION
  Report Type: 
  Country: None (occurrence: None)
  Receive Date: 20100804
  Receipt Date: 20071210
  Transmission Date: 20110219
  Serious: No
  Sender: FDA-Public Use
  Company Number: US-PFIZER INC-2007100481

PATIENT
  Sex: Female
  Weight: 63.6 kg

DRUGS (5)
  1. NARDIL [Suspect]
     Dates: start: 19870101
  2. EVISTA [Concomitant]
     Indication: HORMONE REPLACEMENT THERAPY
     Dates: start: 20010101
  3. SYNTHROID [Concomitant]
     Indication: HYPERTHYROIDISM
  4. ACETYLSALICYLIC ACID SRT [Concomitant]
  5. MULTI-VITAMINS [Concomitant]

REACTIONS (3)
  - ABDOMINAL DISCOMFORT [None]
  - BLOOD PRESSURE INCREASED [None]
  - PRODUCT QUALITY ISSUE [None]
